FAERS Safety Report 19839514 (Version 1)
Quarter: 2021Q3

REPORT INFORMATION
  Report Type: Spontaneous
  Country: TH (occurrence: TH)
  Receive Date: 20210916
  Receipt Date: 20210916
  Transmission Date: 20211014
  Serious: Yes (Hospitalization, Other)
  Sender: FDA-Public Use
  Company Number: TH-SNT-000176

PATIENT
  Age: 38 Year
  Sex: Female

DRUGS (3)
  1. POSACONAZOLE [Suspect]
     Active Substance: POSACONAZOLE
     Indication: FUNGAL INFECTION
     Dosage: 300 MG EVERY 12 HOURS ON THE FIRST DAY
     Route: 048
  2. MEROPENEM. [Suspect]
     Active Substance: MEROPENEM
     Indication: FUNGAL INFECTION
     Route: 042
  3. POSACONAZOLE [Suspect]
     Active Substance: POSACONAZOLE
     Indication: FUNGAL INFECTION
     Dosage: FOLLOWED BY A MAINTENANCE DOSE OF 300 MG DAILY
     Route: 048

REACTIONS (5)
  - Febrile neutropenia [Unknown]
  - Drug eruption [Recovered/Resolved]
  - General physical health deterioration [Unknown]
  - Disease progression [Unknown]
  - Face oedema [Unknown]
